FAERS Safety Report 12208614 (Version 1)
Quarter: 2016Q1

REPORT INFORMATION
  Report Type: Spontaneous
  Country: US (occurrence: US)
  Receive Date: 20160324
  Receipt Date: 20160324
  Transmission Date: 20160526
  Serious: No
  Sender: FDA-Public Use
  Company Number: US-SHIONOGI, INC-2015000971

PATIENT
  Age: 57 Year
  Sex: Male

DRUGS (1)
  1. OSPHENA [Suspect]
     Active Substance: OSPEMIFENE
     Dosage: UNK

REACTIONS (2)
  - Exposure via partner [Unknown]
  - Aphthous ulcer [Unknown]
